FAERS Safety Report 7275774-5 (Version None)
Quarter: 2011Q1

REPORT INFORMATION
  Report Type: 
  Country: None (occurrence: None)
  Receive Date: 20110202
  Receipt Date: 20110202
  Transmission Date: 20110831
  Serious: Yes (Hospitalization)
  Sender: FDA-Public Use
  Company Number: None

PATIENT
  Sex: Male
  Weight: 87.3 kg

DRUGS (4)
  1. MERCAPTOPURINE [Suspect]
     Dosage: 2200 MG
  2. METHOTREXATE [Suspect]
     Dosage: 55 MG
  3. VINCRISTINE SULFATE [Suspect]
     Dosage: 2 MG
  4. DEXAMETHASONE [Suspect]
     Dosage: 60 MG

REACTIONS (5)
  - ZYGOMYCOSIS [None]
  - SINUSITIS FUNGAL [None]
  - HAEMATOMA [None]
  - ASPERGILLUS TEST POSITIVE [None]
  - SUBDURAL HAEMATOMA [None]
